FAERS Safety Report 17804454 (Version 2)
Quarter: 2021Q4

REPORT INFORMATION
  Report Type: Report from Study
  Country: CA (occurrence: CA)
  Receive Date: 20200519
  Receipt Date: 20211210
  Transmission Date: 20220303
  Serious: Yes (Other)
  Sender: FDA-Public Use
  Company Number: CA-NOVARTISPH-NVSC2020CA132804

PATIENT
  Age: 49 Year
  Sex: Female

DRUGS (7)
  1. LETROZOLE [Suspect]
     Active Substance: LETROZOLE
     Indication: Breast cancer metastatic
     Dosage: 2.5 MG, QD
     Route: 048
     Dates: start: 201201, end: 201302
  2. LETROZOLE [Suspect]
     Active Substance: LETROZOLE
     Dosage: 2.5 MG, QD
     Route: 048
     Dates: start: 201807, end: 201809
  3. ZOMETA [Suspect]
     Active Substance: ZOLEDRONIC ACID
     Indication: Breast cancer metastatic
     Dosage: UNK
     Route: 065
  4. RIBOCICLIB [Suspect]
     Active Substance: RIBOCICLIB
     Indication: Breast cancer metastatic
     Dosage: UNK
     Route: 065
  5. TAMOXIFEN [Suspect]
     Active Substance: TAMOXIFEN
     Indication: Breast cancer metastatic
     Dosage: UNK
     Route: 065
     Dates: start: 200903, end: 201010
  6. TAMOXIFEN [Suspect]
     Active Substance: TAMOXIFEN
     Dosage: UNK
     Route: 065
     Dates: start: 201306
  7. GOSERELIN [Suspect]
     Active Substance: GOSERELIN
     Indication: Breast cancer metastatic
     Dosage: UNK
     Route: 065

REACTIONS (12)
  - Superior vena cava occlusion [Unknown]
  - Breast cancer metastatic [Unknown]
  - Malignant neoplasm progression [Unknown]
  - Metastases to bone [Unknown]
  - Metastases to pelvis [Unknown]
  - Deep vein thrombosis [Unknown]
  - Menstruation irregular [Unknown]
  - Skin burning sensation [Unknown]
  - Skin fragility [Unknown]
  - Pain [Unknown]
  - Gastrointestinal disorder [Unknown]
  - Herpes zoster [Unknown]

NARRATIVE: CASE EVENT DATE: 20130201
